FAERS Safety Report 12972144 (Version 1)
Quarter: 2016Q4

REPORT INFORMATION
  Report Type: Spontaneous
  Country: US (occurrence: US)
  Receive Date: 20161124
  Receipt Date: 20161124
  Transmission Date: 20170207
  Serious: No
  Sender: FDA-Public Use
  Company Number: US-ALVOGEN-2016-ALVOGEN-025523

PATIENT
  Sex: Male
  Weight: 86.36 kg

DRUGS (2)
  1. LISINOPRIL. [Suspect]
     Active Substance: LISINOPRIL
     Indication: HYPERTENSION
     Route: 048
     Dates: end: 20160114
  2. LISINOPRIL. [Suspect]
     Active Substance: LISINOPRIL
     Indication: HYPERTENSION
     Route: 048
     Dates: start: 201501

REACTIONS (5)
  - Visual impairment [Unknown]
  - Bradyphrenia [Unknown]
  - Malaise [Unknown]
  - Drug ineffective [Unknown]
  - Diarrhoea [Unknown]
